FAERS Safety Report 7861534-0 (Version None)
Quarter: 2011Q4

REPORT INFORMATION
  Report Type: 
  Country: None (occurrence: None)
  Receive Date: 20111027
  Receipt Date: 20111020
  Transmission Date: 20120403
  Serious: Yes (Other)
  Sender: FDA-Public Use
  Company Number: US-AMGEN-USASP2011054631

PATIENT
  Age: 65 Year
  Sex: Male
  Weight: 113.4 kg

DRUGS (2)
  1. ARANESP [Suspect]
     Indication: HAEMOGLOBIN DECREASED
     Dosage: 300 UNK, UNK
     Dates: start: 20111016
  2. VENOFER [Concomitant]
     Indication: HAEMOGLOBIN DECREASED
     Dosage: 1 ML, QD
     Route: 042

REACTIONS (2)
  - BLOOD ERYTHROPOIETIN INCREASED [None]
  - DRUG INEFFECTIVE [None]
